FAERS Safety Report 25902611 (Version 2)
Quarter: 2025Q4

REPORT INFORMATION
  Report Type: Spontaneous
  Country: EU (occurrence: EU)
  Receive Date: 20251009
  Receipt Date: 20251106
  Transmission Date: 20260118
  Serious: Yes (Hospitalization, Other)
  Sender: AMGEN
  Company Number: EU-002147023-NVSC2025DE153690

PATIENT
  Sex: Female

DRUGS (1)
  1. AIMOVIG [Suspect]
     Active Substance: ERENUMAB-AOOE
     Indication: Migraine
     Dosage: UNK (140)
     Route: 065
     Dates: start: 20240731

REACTIONS (1)
  - Myocarditis [Unknown]

NARRATIVE: CASE EVENT DATE: 20250813
